FAERS Safety Report 9139179 (Version 1)
Quarter: 2013Q1

REPORT INFORMATION
  Report Type: Spontaneous
  Country: IT (occurrence: IT)
  Receive Date: 20130305
  Receipt Date: 20130305
  Transmission Date: 20140127
  Serious: Yes (Death, Other)
  Sender: FDA-Public Use
  Company Number: IT-PFIZER INC-2013074251

PATIENT
  Age: 72 Year
  Sex: Male

DRUGS (2)
  1. SUTENT [Suspect]
     Indication: RENAL CANCER
     Dosage: 50 MG, 1X/DAY  (4/2 WEEKS)
     Route: 048
     Dates: start: 201205, end: 201210
  2. SUTENT [Suspect]
     Dosage: 50 MG CYCLIC (4/2 WEEKS)
     Dates: start: 201210, end: 201211

REACTIONS (3)
  - Disease progression [Fatal]
  - Renal cancer [Fatal]
  - Hypertensive crisis [Unknown]
